FAERS Safety Report 20611374 (Version 1)
Quarter: 2022Q1

REPORT INFORMATION
  Report Type: Spontaneous
  Country: CN (occurrence: CN)
  Receive Date: 20220318
  Receipt Date: 20220318
  Transmission Date: 20220423
  Serious: Yes (Hospitalization, Other)
  Sender: FDA-Public Use
  Company Number: CN-PFIZER INC-202200397432

PATIENT
  Age: 73 Year
  Sex: Male
  Weight: 58 kg

DRUGS (4)
  1. CYTARABINE [Suspect]
     Active Substance: CYTARABINE
     Indication: Chemotherapy
     Dosage: 0.1 G, 1X/DAY
     Route: 041
     Dates: start: 20220215, end: 20220222
  2. OMACETAXINE MEPESUCCINATE [Suspect]
     Active Substance: OMACETAXINE MEPESUCCINATE
     Indication: Chemotherapy
     Dosage: 2 MG, 1X/DAY
     Route: 041
     Dates: start: 20220215, end: 20220222
  3. FAMOTIDINE [Concomitant]
     Active Substance: FAMOTIDINE
     Indication: Hyperchlorhydria
     Dosage: 20 MG, 1X/DAY
     Route: 041
     Dates: start: 20220216, end: 20220223
  4. GRANISETRON HYDROCHLORIDE [Concomitant]
     Active Substance: GRANISETRON HYDROCHLORIDE
     Indication: Vomiting
     Dosage: 3 MG, 1X/DAY
     Route: 041
     Dates: start: 20220215, end: 20220222

REACTIONS (7)
  - White blood cell count decreased [Recovering/Resolving]
  - Platelet count decreased [Recovering/Resolving]
  - Agranulocytosis [Unknown]
  - Sepsis [Unknown]
  - Epistaxis [Unknown]
  - Discomfort [Unknown]
  - Pyrexia [Unknown]

NARRATIVE: CASE EVENT DATE: 20220226
